FAERS Safety Report 9251654 (Version 1)
Quarter: 2013Q2

REPORT INFORMATION
  Report Type: Spontaneous
  Country: DE (occurrence: DE)
  Receive Date: 20130424
  Receipt Date: 20130424
  Transmission Date: 20140414
  Serious: Yes (Hospitalization, Other)
  Sender: FDA-Public Use
  Company Number: DE-ELI_LILLY_AND_COMPANY-DE201304005130

PATIENT
  Age: 48 Year
  Sex: Female

DRUGS (23)
  1. OLANZAPINE [Suspect]
     Dosage: 5 MG, QD
     Route: 048
     Dates: start: 20130102, end: 20130107
  2. OLANZAPINE [Suspect]
     Dosage: 7.5 MG, QD
     Route: 048
     Dates: start: 20130108
  3. OLANZAPINE [Suspect]
     Dosage: 10 MG, QD
     Route: 048
     Dates: start: 20130109, end: 20130110
  4. OLANZAPINE [Suspect]
     Dosage: 7.5 MG, QD
     Route: 048
     Dates: start: 20130111, end: 20130114
  5. OLANZAPINE [Suspect]
     Dosage: 5 MG, QD
     Route: 048
     Dates: start: 20130115, end: 20130116
  6. OLANZAPINE [Suspect]
     Dosage: 2.5 MG, QD
     Route: 048
     Dates: start: 20130117
  7. HALOPERIDOL [Concomitant]
     Dosage: 5 MG, UNK
     Route: 048
     Dates: end: 20130107
  8. HALOPERIDOL [Concomitant]
     Dosage: 2.5 MG, QD
     Route: 048
     Dates: start: 20130108, end: 20130121
  9. HALOPERIDOL [Concomitant]
     Dosage: 1 MG, QD
     Route: 048
     Dates: start: 20130122, end: 20130211
  10. OXAZEPAM [Concomitant]
     Dosage: 15 MG, QD
     Route: 048
     Dates: end: 20130107
  11. OXAZEPAM [Concomitant]
     Dosage: 12.5 MG, QD
     Route: 048
     Dates: start: 20130108, end: 20130114
  12. OXAZEPAM [Concomitant]
     Dosage: 10 MG, QD
     Route: 048
     Dates: start: 20130115, end: 20130123
  13. OXAZEPAM [Concomitant]
     Dosage: 7.5 MG, QD
     Route: 048
     Dates: start: 20130124, end: 20130127
  14. OXAZEPAM [Concomitant]
     Dosage: 5 MG, UNKNOWN
     Route: 048
     Dates: start: 20130129, end: 20130224
  15. AKINETON                                /AUS/ [Concomitant]
     Dosage: 4 MG, QD
     Route: 048
     Dates: end: 20130115
  16. AKINETON                                /AUS/ [Concomitant]
     Dosage: 2 MG, QD
     Route: 048
     Dates: start: 20130116, end: 20130211
  17. ZOPICLONE [Concomitant]
     Dosage: 7.5 MG, QD
     Route: 048
     Dates: end: 20130110
  18. ZOPICLONE [Concomitant]
     Dosage: 3.75 MG, QD
     Route: 048
     Dates: start: 20130111
  19. CELEBREX [Concomitant]
     Dosage: 400 MG, QD
     Route: 048
     Dates: start: 20121213, end: 20130110
  20. CELEBREX [Concomitant]
     Dosage: 200 MG, QD
     Route: 048
     Dates: start: 20130112, end: 20130115
  21. SERTRALINE [Concomitant]
     Dosage: 150 MG, QD
     Route: 048
  22. RISPERIDON [Concomitant]
     Dosage: 1 DF, UNKNOWN
  23. MIRTAZAPIN [Concomitant]
     Dosage: 1 DF, UNKNOWN

REACTIONS (2)
  - Eyelid oedema [Recovered/Resolved]
  - Liver function test abnormal [Unknown]
